FAERS Safety Report 8740267 (Version 2)
Quarter: 2013Q4

REPORT INFORMATION
  Report Type: Spontaneous
  Country: US (occurrence: US)
  Receive Date: 20120823
  Receipt Date: 20131101
  Transmission Date: 20140711
  Serious: No
  Sender: FDA-Public Use
  Company Number: US-009507513-1208USA002585

PATIENT
  Age: 19 Year
  Sex: Female
  Weight: 68.27 kg

DRUGS (1)
  1. NUVARING [Suspect]
     Indication: MENSTRUAL CYCLE MANAGEMENT
     Dosage: 1 DF, 3 WEEK IN 1 WEEK OUT
     Route: 067
     Dates: start: 201205, end: 20120803

REACTIONS (2)
  - Metrorrhagia [Unknown]
  - Muscle spasms [Unknown]
